FAERS Safety Report 21980571 (Version 1)
Quarter: 2023Q1

REPORT INFORMATION
  Report Type: Report from Study
  Country: US (occurrence: US)
  Receive Date: 20230211
  Receipt Date: 20230211
  Transmission Date: 20230418
  Serious: Yes (Other)
  Sender: FDA-Public Use
  Company Number: US-ABBVIE-4259994

PATIENT
  Sex: Female

DRUGS (2)
  1. RINVOQ [Suspect]
     Active Substance: UPADACITINIB
     Indication: Rheumatoid arthritis
     Route: 048
     Dates: start: 20220818
  2. RINVOQ [Suspect]
     Active Substance: UPADACITINIB
     Indication: Rheumatoid arthritis
     Route: 048

REACTIONS (8)
  - Stent placement [Not Recovered/Not Resolved]
  - Nasal discharge discolouration [Unknown]
  - Epistaxis [Not Recovered/Not Resolved]
  - Varicose vein [Unknown]
  - Musculoskeletal stiffness [Unknown]
  - Sinusitis [Not Recovered/Not Resolved]
  - Scab [Unknown]
  - Headache [Not Recovered/Not Resolved]
